FAERS Safety Report 6257661-4 (Version None)
Quarter: 2009Q3

REPORT INFORMATION
  Report Type: 
  Country: None (occurrence: None)
  Receive Date: 20090706
  Receipt Date: 20090624
  Transmission Date: 20100115
  Serious: Yes (Hospitalization)
  Sender: FDA-Public Use
  Company Number: ES-TEVA-170748ISR

PATIENT
  Sex: Female
  Weight: 75 kg

DRUGS (5)
  1. FLUOROURACIL [Suspect]
     Indication: COLORECTAL CANCER METASTATIC
     Route: 040
     Dates: start: 20080222, end: 20080414
  2. FOLINIC ACID [Suspect]
     Indication: COLORECTAL CANCER METASTATIC
     Route: 042
     Dates: start: 20080222, end: 20080414
  3. IRINOTECAN HCL [Suspect]
     Indication: COLORECTAL CANCER METASTATIC
     Route: 042
     Dates: start: 20080222, end: 20080414
  4. SUNITINIB (BLINDED THERAPY) [Suspect]
     Route: 048
     Dates: start: 20080223, end: 20080414
  5. IRON [Suspect]
     Route: 048
     Dates: start: 20080215

REACTIONS (2)
  - CARDIAC FAILURE [None]
  - PULMONARY EMBOLISM [None]
